FAERS Safety Report 5862923-6 (Version None)
Quarter: 2008Q3

REPORT INFORMATION
  Report Type: 
  Country: None (occurrence: None)
  Receive Date: 20080828
  Receipt Date: 20080822
  Transmission Date: 20090109
  Serious: Yes (Death)
  Sender: FDA-Public Use
  Company Number: A0744804A

PATIENT
  Age: 97 Year
  Sex: Female
  Weight: 48 kg

DRUGS (5)
  1. SERETIDE [Suspect]
     Indication: CHRONIC OBSTRUCTIVE PULMONARY DISEASE
     Route: 055
     Dates: start: 20050101, end: 20080727
  2. SUSTRATE [Concomitant]
     Dosage: 10MG TWICE PER DAY
     Dates: start: 20000101, end: 20080717
  3. PANTOPRAZOLE [Concomitant]
     Dosage: 20MG PER DAY
     Dates: start: 20040101, end: 20080717
  4. FUROSEMIDE [Concomitant]
     Dates: start: 20040101, end: 20080717
  5. POTASSIUM CHLORIDE [Concomitant]
     Dates: start: 20040101, end: 20080717

REACTIONS (1)
  - MULTI-ORGAN FAILURE [None]
